FAERS Safety Report 10540233 (Version 2)
Quarter: 2014Q4

REPORT INFORMATION
  Report Type: Spontaneous
  Country: FR (occurrence: FR)
  Receive Date: 20141024
  Receipt Date: 20141118
  Transmission Date: 20150529
  Serious: Yes (Other)
  Sender: FDA-Public Use
  Company Number: FR-BAYER-2014-153189

PATIENT
  Age: 38 Year
  Sex: Female
  Weight: 69 kg

DRUGS (4)
  1. DEROXAT [Concomitant]
     Active Substance: PAROXETINE HYDROCHLORIDE
     Dosage: 20 MG, QD
     Route: 048
     Dates: start: 2011, end: 20140520
  2. MIRENA [Suspect]
     Active Substance: LEVONORGESTREL
     Indication: CONTRACEPTION
     Dosage: 20 MCG/24HR, CONT
     Route: 015
     Dates: start: 20081211, end: 20140120
  3. ZOMIGORO [Concomitant]
     Active Substance: ZOLMITRIPTAN
     Route: 048
  4. TOLEXINE [Concomitant]
     Active Substance: DOXYCYCLINE
     Dosage: 100 MG, QD
     Route: 048
     Dates: start: 2012, end: 20140110

REACTIONS (5)
  - Procedural pain [None]
  - Depression [None]
  - Antidepressant therapy [Recovering/Resolving]
  - Acne [Recovered/Resolved]
  - Headache [Recovered/Resolved]

NARRATIVE: CASE EVENT DATE: 20081211
